FAERS Safety Report 7994646-1 (Version None)
Quarter: 2011Q4

REPORT INFORMATION
  Report Type: 
  Country: None (occurrence: None)
  Receive Date: 20111220
  Receipt Date: 20111210
  Transmission Date: 20120403
  Serious: Yes (Hospitalization, Other)
  Sender: FDA-Public Use
  Company Number: US-BAYER-2011-027228

PATIENT
  Age: 25 Year
  Sex: Female

DRUGS (6)
  1. LYRICA [Concomitant]
     Dosage: UNK
     Dates: start: 20070601, end: 20090101
  2. YAZ [Suspect]
     Indication: CONTRACEPTION
     Dosage: UNK
     Dates: start: 20050101, end: 20090101
  3. IBUPROFEN [Concomitant]
     Dosage: UNK
     Dates: start: 20010901
  4. ANTIBIOTICS [Concomitant]
     Dosage: UNK
     Dates: start: 20031201, end: 20100301
  5. LYRICA [Concomitant]
     Indication: FIBROMYALGIA
     Dosage: UNK
     Dates: start: 20060101
  6. MULTI-VITAMINS [Concomitant]
     Indication: MEDICAL DIET
     Dosage: UNK UNK, QD
     Route: 048

REACTIONS (11)
  - INJURY [None]
  - PAIN [None]
  - EMOTIONAL DISTRESS [None]
  - GALLBLADDER DISORDER [None]
  - BILIARY DYSKINESIA [None]
  - APPENDICITIS [None]
  - ANXIETY [None]
  - VOMITING [None]
  - CHOLECYSTITIS CHRONIC [None]
  - GENERAL PHYSICAL HEALTH DETERIORATION [None]
  - ANHEDONIA [None]
